FAERS Safety Report 11047238 (Version 1)
Quarter: 2015Q2

REPORT INFORMATION
  Report Type: Spontaneous
  Country: DE (occurrence: None)
  Receive Date: 20150416
  Receipt Date: 20150416
  Transmission Date: 20150821
  Serious: Yes (Other)
  Sender: FDA-Public Use
  Company Number: HRA-CDB20150094

PATIENT
  Sex: Female
  Weight: 90 kg

DRUGS (1)
  1. ELLAONE 30 MG TABLET (ELLAONE) (ULIPRISTAL ACETATE) [Suspect]
     Active Substance: ULIPRISTAL ACETATE
     Indication: POST COITAL CONTRACEPTION
     Dates: start: 20150319, end: 20150319

REACTIONS (3)
  - Vaginal haemorrhage [None]
  - Abortion spontaneous [None]
  - Pregnancy after post coital contraception [None]

NARRATIVE: CASE EVENT DATE: 2015
